FAERS Safety Report 5324693-X (Version None)
Quarter: 2007Q2

REPORT INFORMATION
  Report Type: 
  Country: None (occurrence: None)
  Receive Date: 20070220
  Receipt Date: 20061218
  Transmission Date: 20071010
  Serious: No
  Sender: FDA-Public Use
  Company Number: WAES 0612USA02990

PATIENT
  Age: 52 Year
  Sex: Female

DRUGS (11)
  1. JANUVIA [Suspect]
     Indication: GLUCOSE TOLERANCE IMPAIRED
     Dosage: 100 MG/DAILY/PO
     Route: 048
     Dates: start: 20061204, end: 20061216
  2. ACTOS [Concomitant]
  3. COUMADIN [Concomitant]
  4. ESGIC-PLUS TABLETS [Concomitant]
  5. FOSAMAX [Concomitant]
  6. LIPITOR [Concomitant]
  7. NEXIUM [Concomitant]
  8. ALPRAZOLAM [Concomitant]
  9. AMITRIPTYLINE HYDROCHLORIDE [Concomitant]
  10. CHOLINE [Concomitant]
  11. FUROSEMIDE [Concomitant]

REACTIONS (3)
  - DIZZINESS [None]
  - FALL [None]
  - NAUSEA [None]
